FAERS Safety Report 20690179 (Version 1)
Quarter: 2022Q2

REPORT INFORMATION
  Report Type: Report from Study
  Country: US (occurrence: US)
  Receive Date: 20220408
  Receipt Date: 20220408
  Transmission Date: 20220721
  Serious: Yes (Other)
  Sender: FDA-Public Use
  Company Number: US-ABBVIE-22K-163-4348877-00

PATIENT
  Sex: Female

DRUGS (1)
  1. SYNTHROID [Suspect]
     Active Substance: LEVOTHYROXINE SODIUM
     Indication: Product used for unknown indication
     Route: 048

REACTIONS (7)
  - Thyroid cancer [Unknown]
  - Malabsorption [Unknown]
  - Blood thyroid stimulating hormone decreased [Unknown]
  - Frustration tolerance decreased [Unknown]
  - Anxiety [Unknown]
  - Irritability [Not Recovered/Not Resolved]
  - Fatigue [Unknown]
